FAERS Safety Report 4864547-6 (Version None)
Quarter: 2005Q4

REPORT INFORMATION
  Report Type: 
  Country: None (occurrence: None)
  Receive Date: 20051222
  Receipt Date: 20051219
  Transmission Date: 20060501
  Serious: Yes (Hospitalization)
  Sender: FDA-Public Use
  Company Number: US-BRISTOL-MYERS SQUIBB COMPANY-13223904

PATIENT
  Age: 63 Year
  Sex: Male
  Weight: 110 kg

DRUGS (10)
  1. ERBITUX [Suspect]
     Indication: COLON CANCER METASTATIC
     Route: 042
  2. ALOXI [Concomitant]
     Indication: PREMEDICATION
     Route: 042
  3. ATROPINE [Concomitant]
     Indication: PREMEDICATION
     Route: 042
  4. BENADRYL [Concomitant]
     Indication: PREMEDICATION
     Route: 042
  5. DECADRON [Concomitant]
     Indication: PREMEDICATION
     Route: 042
  6. ZANTAC [Concomitant]
     Indication: PREMEDICATION
     Route: 042
  7. CAMPTOSAR [Concomitant]
     Route: 042
  8. CODEINE [Concomitant]
  9. ENALAPRIL [Concomitant]
  10. IBUPROFEN [Concomitant]

REACTIONS (4)
  - AORTIC VALVE STENOSIS [None]
  - DIARRHOEA [None]
  - DYSPNOEA [None]
  - PAIN IN EXTREMITY [None]
